FAERS Safety Report 6578508-2 (Version None)
Quarter: 2010Q1

REPORT INFORMATION
  Report Type: 
  Country: None (occurrence: None)
  Receive Date: 20100211
  Receipt Date: 20100202
  Transmission Date: 20100710
  Serious: Yes (Other)
  Sender: FDA-Public Use
  Company Number: PHHY2010BR06277

PATIENT
  Sex: Male

DRUGS (2)
  1. DIOVAN AMLO FIX [Suspect]
     Dosage: 1 TABLET  (160/5 MG) PER DAY
  2. DIOVAN AMLO FIX [Suspect]
     Dosage: 2 TABLETS  (160/5 MG) PER DAY
     Route: 048

REACTIONS (2)
  - BLOOD PRESSURE INADEQUATELY CONTROLLED [None]
  - BLOOD PRESSURE INCREASED [None]
